FAERS Safety Report 5338753-0 (Version None)
Quarter: 2007Q2

REPORT INFORMATION
  Report Type: 
  Country: None (occurrence: None)
  Receive Date: 20070322
  Receipt Date: 20060313
  Transmission Date: 20071010
  Serious: Yes (Other)
  Sender: FDA-Public Use
  Company Number: 200610542BCC

PATIENT
  Age: 76 Year
  Sex: Female
  Weight: 93.441 kg

DRUGS (16)
  1. ALEVE (CAPLET) [Suspect]
     Indication: ARTHRITIS
     Dosage: 440 MG, QD, ORAL
     Route: 048
     Dates: start: 20050201
  2. AVANDIA [Concomitant]
  3. FUROSEMIDE [Concomitant]
  4. ZOCOR [Concomitant]
  5. GLUCOTROL [Concomitant]
  6. HUMULIN N [Concomitant]
  7. LOPID [Concomitant]
  8. COENZYME Q10 [Concomitant]
  9. LECITHIN [Concomitant]
  10. TRIVITA B12 [Concomitant]
  11. TRIVITA B6 [Concomitant]
  12. TRIVITA FOLIC ACID [Concomitant]
  13. NUTRITIONAL WAREHOUSE CALCIUM PLUS MAGNESIUM AND ZINC [Concomitant]
  14. PURITANS PRIDE FLAX SEED OIL [Concomitant]
  15. VITAMIN C WITH ROSE HIPS [Concomitant]
  16. VITAMIN E [Concomitant]

REACTIONS (2)
  - BLOOD POTASSIUM INCREASED [None]
  - RENAL IMPAIRMENT [None]
